FAERS Safety Report 25167751 (Version 1)
Quarter: 2025Q2

REPORT INFORMATION
  Report Type: Spontaneous
  Country: US (occurrence: None)
  Receive Date: 20250406
  Receipt Date: 20250406
  Transmission Date: 20250717
  Serious: No
  Sender: FDA-CTU
  Company Number: None

PATIENT
  Age: 39 Year
  Sex: Female
  Weight: 103.5 kg

DRUGS (1)
  1. MONISTAT 3 [Suspect]
     Active Substance: MICONAZOLE NITRATE
     Indication: Fungal infection
     Dosage: AT BEDTIME VAGINAL ?
     Route: 067
     Dates: start: 20250405

REACTIONS (2)
  - Vulvovaginal burning sensation [None]
  - Insomnia [None]

NARRATIVE: CASE EVENT DATE: 20250405
